FAERS Safety Report 23925496 (Version 1)
Quarter: 2024Q2

REPORT INFORMATION
  Report Type: Spontaneous
  Country: CN (occurrence: CN)
  Receive Date: 20240531
  Receipt Date: 20240531
  Transmission Date: 20240716
  Serious: Yes (Other)
  Sender: FDA-Public Use
  Company Number: CN-PFIZER INC-PV202400071386

PATIENT
  Age: 57 Year
  Sex: Male

DRUGS (1)
  1. CYTARABINE [Suspect]
     Active Substance: CYTARABINE
     Indication: Chemotherapy
     Dosage: 100 MG, Q12 D1-D7
     Route: 041
     Dates: start: 20240518, end: 20240524

REACTIONS (3)
  - Stomatitis [Recovering/Resolving]
  - Oral herpes [Recovering/Resolving]
  - Mouth injury [Recovering/Resolving]

NARRATIVE: CASE EVENT DATE: 20240520
